FAERS Safety Report 5344872-5 (Version None)
Quarter: 2007Q2

REPORT INFORMATION
  Report Type: 
  Country: None (occurrence: None)
  Receive Date: 20070416
  Receipt Date: 20070117
  Transmission Date: 20071010
  Serious: No
  Sender: FDA-Public Use
  Company Number: 2007SP000202

PATIENT
  Age: 93 Year
  Sex: Male
  Weight: 59.8748 kg

DRUGS (5)
  1. LUNESTA [Suspect]
     Indication: INSOMNIA
     Dosage: 2 MG;HS;ORAL
     Route: 048
     Dates: start: 20070115
  2. OXYCODONE HCL [Concomitant]
  3. VITAMIN CAP [Concomitant]
  4. SIMVASTATIN [Concomitant]
  5. PLAVIX [Concomitant]

REACTIONS (2)
  - DRUG INEFFECTIVE [None]
  - MIDDLE INSOMNIA [None]
